FAERS Safety Report 13583908 (Version 1)
Quarter: 2017Q2

REPORT INFORMATION
  Report Type: Report from Study
  Country: KR (occurrence: KR)
  Receive Date: 20170526
  Receipt Date: 20170526
  Transmission Date: 20170830
  Serious: Yes (Hospitalization)
  Sender: FDA-Public Use
  Company Number: US-ASTRAZENECA-2017SE55821

PATIENT
  Age: 75 Year
  Sex: Male
  Weight: 59 kg

DRUGS (8)
  1. SPIRIVA [Concomitant]
     Active Substance: TIOTROPIUM BROMIDE MONOHYDRATE
     Indication: CHRONIC OBSTRUCTIVE PULMONARY DISEASE
     Dosage: 18 ???G, QD
     Route: 055
     Dates: start: 20100702
  2. AZEPTIN [Concomitant]
     Active Substance: AZELASTINE HYDROCHLORIDE
     Indication: CHRONIC OBSTRUCTIVE PULMONARY DISEASE
     Dosage: 2 MG, BID
     Route: 048
     Dates: start: 20120222
  3. SMECTA [Concomitant]
     Active Substance: MONTMORILLONITE
     Indication: GASTROENTERITIS
     Dosage: 3 G, QD
     Route: 048
     Dates: start: 20140103, end: 20140103
  4. ROFLUMILAST [Suspect]
     Active Substance: ROFLUMILAST
     Indication: CHRONIC OBSTRUCTIVE PULMONARY DISEASE
     Dosage: 500.0UG UNKNOWN
     Route: 048
     Dates: start: 20131203, end: 20131229
  5. SERETIDE [Concomitant]
     Active Substance: FLUTICASONE PROPIONATE\SALMETEROL XINAFOATE
     Indication: CHRONIC OBSTRUCTIVE PULMONARY DISEASE
     Dosage: 1000 ???G, BID
     Route: 055
     Dates: start: 20131008
  6. ERDOS [Concomitant]
     Indication: CHRONIC OBSTRUCTIVE PULMONARY DISEASE
     Dosage: 600 MG, BID
     Route: 048
     Dates: start: 20100804
  7. ARESTAL [Concomitant]
     Active Substance: LOPERAMIDE OXIDE
     Indication: GASTROENTERITIS
     Dosage: 2 MG, QD
     Route: 048
     Dates: start: 20140101, end: 20140101
  8. PHAZYME [Concomitant]
     Active Substance: DIMETHICONE 410
     Indication: GASTROENTERITIS
     Dosage: UNK, QD
     Route: 048
     Dates: start: 20140105, end: 20140105

REACTIONS (1)
  - Gastroenteritis [Recovered/Resolved]

NARRATIVE: CASE EVENT DATE: 20131230
